FAERS Safety Report 20763240 (Version 2)
Quarter: 2022Q2

REPORT INFORMATION
  Report Type: Spontaneous
  Country: FI (occurrence: FI)
  Receive Date: 20220428
  Receipt Date: 20220630
  Transmission Date: 20220721
  Serious: No
  Sender: FDA-Public Use
  Company Number: FI-PFIZER INC-202200544302

PATIENT

DRUGS (1)
  1. FRAGMIN [Suspect]
     Active Substance: DALTEPARIN SODIUM
     Dosage: UNK

REACTIONS (2)
  - Device deposit issue [Unknown]
  - Device occlusion [Unknown]

NARRATIVE: CASE EVENT DATE: 20220317
